FAERS Safety Report 8560902-1 (Version None)
Quarter: 2012Q3

REPORT INFORMATION
  Report Type: 
  Country: None (occurrence: None)
  Receive Date: 20120802
  Receipt Date: 20120725
  Transmission Date: 20120928
  Serious: Yes (Other)
  Sender: FDA-Public Use
  Company Number: ES-BRISTOL-MYERS SQUIBB COMPANY-16680266

PATIENT
  Age: 77 Year
  Sex: Female

DRUGS (3)
  1. LANSOPRAZOLE [Concomitant]
  2. CALCIUM CARBONATE [Concomitant]
  3. DASATINIB [Suspect]
     Indication: CHRONIC MYELOID LEUKAEMIA
     Dates: start: 20100115

REACTIONS (1)
  - SQUAMOUS CELL CARCINOMA OF SKIN [None]
